FAERS Safety Report 5340277-1 (Version None)
Quarter: 2007Q2

REPORT INFORMATION
  Report Type: 
  Country: None (occurrence: None)
  Receive Date: 20070405
  Receipt Date: 20070118
  Transmission Date: 20071010
  Serious: No
  Sender: FDA-Public Use
  Company Number: US200701003652

PATIENT
  Age: 59 Year
  Sex: Female

DRUGS (5)
  1. CYMBALTA [Suspect]
     Dosage: 60 MG, 90 MG
  2. XANAX /USA/ (ALPRAZOLAM) [Concomitant]
  3. OXYGEN (OXYGEN) [Concomitant]
  4. PLAQUENIL [Concomitant]
  5. VICODIN [Concomitant]

REACTIONS (7)
  - ANGER [None]
  - ARTHRALGIA [None]
  - DRUG INEFFECTIVE [None]
  - FEELING ABNORMAL [None]
  - FEELING OF DESPAIR [None]
  - JOINT RANGE OF MOTION DECREASED [None]
  - JOINT SWELLING [None]
